FAERS Safety Report 20729844 (Version 2)
Quarter: 2022Q2

REPORT INFORMATION
  Report Type: Spontaneous
  Country: US (occurrence: US)
  Receive Date: 20220420
  Receipt Date: 20220524
  Transmission Date: 20220721
  Serious: Yes (Other)
  Sender: FDA-Public Use
  Company Number: US-Vifor (International) Inc.-VIT-2022-02204

PATIENT
  Sex: Female
  Weight: 45.5 kg

DRUGS (37)
  1. VELPHORO [Suspect]
     Active Substance: SUCROFERRIC OXYHYDROXIDE
     Indication: Blood phosphorus increased
     Dosage: 1 PER MEAL, 1500 MG DAILY
     Route: 048
     Dates: start: 20200922, end: 20201017
  2. FERRLECIT [Concomitant]
     Active Substance: SODIUM FERRIC GLUCONATE COMPLEX
     Dates: start: 20200728, end: 20201012
  3. FERRLECIT [Concomitant]
     Active Substance: SODIUM FERRIC GLUCONATE COMPLEX
     Dosage: 12.5 MG/ML SOLUTION EACH TUESDAY AND SATURDAY
     Route: 042
     Dates: start: 20220211, end: 20220407
  4. FERRLECIT [Concomitant]
     Active Substance: SODIUM FERRIC GLUCONATE COMPLEX
     Dosage: 12.5 MG/ML SOLUTION EACH TUESDAY AND SATURDAY
     Route: 042
     Dates: start: 20220407, end: 20220419
  5. FERRLECIT [Concomitant]
     Active Substance: SODIUM FERRIC GLUCONATE COMPLEX
     Dosage: 12.5 MG/ML SOLUTION EACH TUESDAY AND SATURDAY
     Route: 042
     Dates: start: 20220419
  6. HEPARIN [Concomitant]
     Active Substance: HEPARIN SODIUM
     Dosage: 1000 UNITS/ML SOLUTION, EACH TUESDAY AND SATURDAY.
     Route: 040
     Dates: start: 20200721
  7. LOPERAMIDE [Concomitant]
     Active Substance: LOPERAMIDE
     Dosage: EACH TUESDAY AND SATURDAY PRN
     Route: 048
     Dates: start: 20201031
  8. MIRCERA [Concomitant]
     Active Substance: METHOXY POLYETHYLENE GLYCOL-EPOETIN BETA
     Dosage: 75 MCG/0.3 ML SOLUTION EACH TUESDAY
     Route: 042
     Dates: start: 20220224, end: 20220421
  9. SEVELAMER [Concomitant]
     Active Substance: SEVELAMER
     Dosage: WITH MEALS
     Route: 048
     Dates: start: 20200907, end: 20200922
  10. CALCIUM ACETATE [Concomitant]
     Active Substance: CALCIUM ACETATE
     Dosage: WITH MEALS
     Route: 048
     Dates: start: 20200721, end: 20200922
  11. PARICALCITOL [Concomitant]
     Active Substance: PARICALCITOL
     Dosage: 5 MCG/ML SOLUTION, EACH SATURDAY
     Route: 042
     Dates: start: 20200725, end: 20200922
  12. VITAMIN E [Concomitant]
     Active Substance: .ALPHA.-TOCOPHEROL
     Route: 048
     Dates: start: 20200721
  13. VITAMIN C [Concomitant]
     Active Substance: ASCORBIC ACID
     Dosage: 1000 MG TABLET
     Route: 048
     Dates: start: 20200509
  14. TUMS ULTRA [Concomitant]
     Active Substance: CALCIUM CARBONATE
     Dosage: ONE TABLET WITH LARGEST MEAL OF THE DAY
     Route: 048
     Dates: start: 20220208
  15. HERBALS\TURMERIC [Concomitant]
     Active Substance: HERBALS\TURMERIC
     Dosage: TURMERIC CURCUMIN WITH BLACK PEPPER EXTRACT
     Route: 048
     Dates: start: 20200907
  16. TRAZODONE [Concomitant]
     Active Substance: TRAZODONE HYDROCHLORIDE
     Dosage: AT BEDTIME
     Route: 048
     Dates: start: 20210904
  17. SODIUM BICARBONATE [Concomitant]
     Active Substance: SODIUM BICARBONATE
     Dosage: HOME MEDICATION
     Route: 048
     Dates: start: 20210619
  18. RENVELA [Concomitant]
     Active Substance: SEVELAMER CARBONATE
     Dosage: WITH MEALS, 2 TABLETS WITH MEALS AND 1 TABLET WITH SNACKS
     Route: 048
     Dates: start: 20210313
  19. PRASUGREL [Concomitant]
     Active Substance: PRASUGREL
     Route: 048
     Dates: start: 20191221
  20. NIACINAMIDE [Concomitant]
     Active Substance: NIACINAMIDE
     Dosage: AT BEDTIME TAKE 2 AND A HALF TABLET
     Route: 048
     Dates: start: 20210322
  21. METOPROLOL [Concomitant]
     Active Substance: METOPROLOL
     Dosage: EXTENDED RELEASE
     Route: 048
     Dates: start: 20191221
  22. METAMUCIL ORANGE [Concomitant]
     Dosage: 3.4 G/5.8 G POWDER FOR RECONSTITUTION?SMOOTH TEXTURE SUGAR FREE
     Route: 048
     Dates: start: 20210327
  23. IMODIUM A-D [Concomitant]
     Active Substance: LOPERAMIDE HYDROCHLORIDE
     Route: 048
     Dates: start: 20220312
  24. FLAXSEED [Concomitant]
     Active Substance: FLAX SEED
     Route: 048
     Dates: start: 20191219
  25. BIOTIN [Concomitant]
     Active Substance: BIOTIN
     Dosage: DISINTEGRATING
     Route: 048
     Dates: start: 20191221
  26. B COMPLEX WITH B-12 [Concomitant]
     Dosage: 1 EA (VITMAIN B COMPLEX TABLET)
     Route: 048
     Dates: start: 20200905
  27. ATORVASTATIN [Concomitant]
     Active Substance: ATORVASTATIN
     Route: 048
     Dates: start: 20191219
  28. AMLODIPINE [Concomitant]
     Active Substance: AMLODIPINE BESYLATE
     Route: 048
     Dates: start: 20200905
  29. ALLOPURINOL [Concomitant]
     Active Substance: ALLOPURINOL
     Dosage: MONDAY, WEDNESDAY AND FRIDAY
     Route: 048
     Dates: start: 20210322
  30. NITROGLYCERIN [Concomitant]
     Active Substance: NITROGLYCERIN
     Indication: Angina pectoris
     Dosage: EVERY 2 TO 5 MINUTES PRN
     Route: 060
     Dates: start: 20191219
  31. CYCLOBENZAPRINE [Concomitant]
     Active Substance: CYCLOBENZAPRINE
     Dosage: PRN
     Route: 048
     Dates: start: 20191219
  32. COLCHICINE [Concomitant]
     Active Substance: COLCHICINE
     Indication: Gout
     Dosage: PRN
     Route: 048
     Dates: start: 20191219
  33. CALCIUM CARBONATE [Concomitant]
     Active Substance: CALCIUM CARBONATE
     Indication: Dyspepsia
     Dosage: 2 TO 3 CHEWABLE TABLETS PRN
     Route: 048
     Dates: start: 20200905
  34. ACETAMINOPHEN\HYDROCODONE [Concomitant]
     Active Substance: ACETAMINOPHEN\HYDROCODONE
     Indication: Pain
     Dosage: 325 MG-5 MG TABLET, EVERY 8 HOURS PRN AS NEEDED.
     Route: 048
     Dates: start: 20191219
  35. TYLENOL [Concomitant]
     Active Substance: ACETAMINOPHEN
     Indication: Pain
     Dosage: EACH TUESDAY SATURDAY PRN
     Route: 048
     Dates: start: 20210828
  36. TYLENOL [Concomitant]
     Active Substance: ACETAMINOPHEN
     Indication: Pyrexia
  37. LOPERAMIDE [Concomitant]
     Active Substance: LOPERAMIDE
     Dosage: EACH TUESDAY SATURDAY PRN
     Route: 048
     Dates: start: 20201031

REACTIONS (5)
  - Ostomy bag placement [Unknown]
  - Gastrointestinal disorder [Not Recovered/Not Resolved]
  - Abdominal pain [Not Recovered/Not Resolved]
  - Gastrointestinal pain [Recovered/Resolved]
  - Diarrhoea [Recovered/Resolved]

NARRATIVE: CASE EVENT DATE: 20200101
